FAERS Safety Report 6035311-X (Version None)
Quarter: 2009Q1

REPORT INFORMATION
  Report Type: 
  Country: None (occurrence: None)
  Receive Date: 20090108
  Receipt Date: 20081222
  Transmission Date: 20090719
  Serious: No
  Sender: FDA-Public Use
  Company Number: B0551985A

PATIENT
  Age: 54 Year
  Sex: Male

DRUGS (8)
  1. MELPHALAN            (GENERIC) (MELPHALAN) [Suspect]
     Indication: STEM CELL TRANSPLANT
     Dosage: INTRAVENOUS
     Dates: start: 20050501, end: 20050501
  2. BUSULPHAN (GENERIC) (BUSULFAN) [Suspect]
     Indication: BONE MARROW TRANSPLANT
     Dates: start: 20061101
  3. PREDNISOLONE (GENERIC) (PREDNISOLONE) [Suspect]
     Indication: ORGANISING PNEUMONIA
     Dosage: 10 MG/ PER DAY
  4. BORTEZOMIB (BORTEZOMIB) [Suspect]
     Indication: MULTIPLE MYELOMA
     Dosage: 1.3 MG/M2
     Dates: start: 20071101
  5. DEXAMETHASONE TAB [Suspect]
     Indication: MULTIPLE MYELOMA
     Dosage: 20 MG
     Dates: start: 20071101
  6. FLUDARABINE PHOSPHATE [Suspect]
  7. TACROLIMUS CAPSULE (TACROLIMUS) [Suspect]
     Indication: ORGANISING PNEUMONIA
     Dosage: 1.2 MG/ORAL
     Route: 048
  8. METHYLPREDNISOLONE AC. (METHYLPREDNISOLONE AC.) [Suspect]
     Indication: INTERSTITIAL LUNG DISEASE
     Dosage: 1000 MG/D

REACTIONS (14)
  - ANAEMIA [None]
  - ASPARTATE AMINOTRANSFERASE INCREASED [None]
  - BLOOD FIBRINOGEN DECREASED [None]
  - CHEST PAIN [None]
  - COOMBS TEST NEGATIVE [None]
  - DISEASE PROGRESSION [None]
  - DYSPNOEA [None]
  - ECCHYMOSIS [None]
  - MICROANGIOPATHIC HAEMOLYTIC ANAEMIA [None]
  - PETECHIAE [None]
  - PNEUMONIA [None]
  - PROTHROMBIN TIME PROLONGED [None]
  - THROMBOCYTOPENIA [None]
  - THROMBOTIC MICROANGIOPATHY [None]
